FAERS Safety Report 16067946 (Version 1)
Quarter: 2019Q1

REPORT INFORMATION
  Report Type: Spontaneous
  Country: US (occurrence: US)
  Receive Date: 20190212
  Receipt Date: 20190212
  Transmission Date: 20190418
  Serious: No
  Sender: FDA-Public Use
  Company Number: None

PATIENT
  Age: 55 Year
  Sex: Female
  Weight: 97.52 kg

DRUGS (4)
  1. HEPARIN INJECTION [Suspect]
     Active Substance: HEPARIN SODIUM
     Indication: THROMBOSIS
     Dates: start: 20181029
  2. SUMATRIPTAN. [Concomitant]
     Active Substance: SUMATRIPTAN
  3. LISINOPRIL. [Concomitant]
     Active Substance: LISINOPRIL
  4. VENTOLIN [Concomitant]
     Active Substance: ALBUTEROL SULFATE

REACTIONS (5)
  - Injection site inflammation [None]
  - Injection site pruritus [None]
  - Injection site warmth [None]
  - Injection site scar [None]
  - Injection site pain [None]

NARRATIVE: CASE EVENT DATE: 20181029
